FAERS Safety Report 10398359 (Version 1)
Quarter: 2014Q3

REPORT INFORMATION
  Report Type: Report from Study
  Country: DE (occurrence: DE)
  Receive Date: 20140821
  Receipt Date: 20140821
  Transmission Date: 20150326
  Serious: Yes (Hospitalization)
  Sender: FDA-Public Use
  Company Number: DE-ROCHE-1450993

PATIENT
  Age: 61 Year
  Sex: Female
  Weight: 67 kg

DRUGS (5)
  1. PACLITAXEL. [Suspect]
     Active Substance: PACLITAXEL
     Indication: OVARIAN CANCER
     Dosage: DATE OF LAST ADMINISTRATION BEFORE ONSET OF SAE ON 08/JAN/2013
     Route: 042
     Dates: start: 20120919
  2. BEVACIZUMAB [Suspect]
     Active Substance: BEVACIZUMAB
     Indication: OVARIAN CANCER
     Dosage: DATE OF LAST ADMINISTRATION BEFORE ONSET OF SAE ON 14/JUL/2014
     Route: 042
     Dates: start: 20120919
  3. RAMIPRIL. [Concomitant]
     Active Substance: RAMIPRIL
     Indication: HYPERTENSION
     Dosage: DATE OF LAST ADMINISTRATION BEFORE ONSET OF SAE ON 30/07/2014
     Route: 048
     Dates: start: 20140723
  4. CARBOPLATIN. [Suspect]
     Active Substance: CARBOPLATIN
     Indication: OVARIAN CANCER
     Dosage: DATE OF LAST ADMINISTRATION BEFORE ONSET OF SAE ON 08/JAN/2013
     Route: 042
     Dates: start: 20120919
  5. RAMIPRIL COMP [Concomitant]
     Active Substance: HYDROCHLOROTHIAZIDE\RAMIPRIL
     Indication: HYPERTENSION
     Dosage: DATE OF LAST ADMINISTRATION BEFORE ONSET OF SAE ON 30/07/2014
     Route: 048
     Dates: start: 20140703

REACTIONS (1)
  - Angina unstable [Recovered/Resolved]

NARRATIVE: CASE EVENT DATE: 20140731
